FAERS Safety Report 7088825-8 (Version None)
Quarter: 2010Q4

REPORT INFORMATION
  Report Type: 
  Country: None (occurrence: None)
  Receive Date: 20101108
  Receipt Date: 20101027
  Transmission Date: 20110411
  Serious: Yes (Hospitalization)
  Sender: FDA-Public Use
  Company Number: PHHY2009DE06837

PATIENT
  Age: 45 Year
  Sex: Male
  Weight: 81.6 kg

DRUGS (12)
  1. CYCLOSPORINE [Suspect]
     Indication: IMMUNOSUPPRESSION
     Dosage: 125 MG, BID
     Route: 048
     Dates: start: 20080528
  2. CYCLOSPORINE [Suspect]
     Dosage: 100 MG, BID
     Route: 048
     Dates: start: 20080819
  3. CELLCEPT [Suspect]
     Indication: IMMUNOSUPPRESSION
     Dosage: 1000 MG, BID
     Route: 048
     Dates: start: 20080528, end: 20080808
  4. COTRIM [Suspect]
     Indication: ANTIBIOTIC PROPHYLAXIS
     Dosage: 1 DOSAGE FORM EVERY 2 DAY
     Route: 048
     Dates: start: 20080528, end: 20080806
  5. VALCYTE [Suspect]
     Indication: OPPORTUNISTIC INFECTION PROPHYLAXIS
     Dosage: 1 TABLET EVERY 2 DAY
     Route: 048
     Dates: start: 20080528, end: 20080806
  6. BISOPROLOL [Concomitant]
     Indication: HYPERTENSION
     Dosage: 5 MG, BID
     Route: 048
     Dates: start: 20000101
  7. CALCIMAGON-D3 [Concomitant]
     Indication: BLOOD CALCIUM DECREASED
     Dosage: UNK
     Route: 048
     Dates: start: 20050101
  8. DELIX [Concomitant]
     Indication: HYPERTENSION
     Dosage: UNK
     Route: 048
  9. EINSALPHA [Concomitant]
     Indication: OSTEODYSTROPHY
     Dosage: 0.5UG
     Route: 048
     Dates: start: 20000101
  10. FOLSAN [Concomitant]
     Indication: ANAEMIA
     Dosage: 5MG PER DAY
     Route: 048
     Dates: start: 20050101
  11. PREDNIHEXAL [Concomitant]
     Indication: IMMUNOSUPPRESSION
     Dosage: 10MG PER DAY
     Route: 048
     Dates: start: 20080528
  12. TORREM [Concomitant]
     Indication: HYPERTENSION
     Dosage: 10MG PER DAY
     Route: 048
     Dates: start: 20000101

REACTIONS (3)
  - BONE MARROW TOXICITY [None]
  - LEUKOPENIA [None]
  - NEUTROPHIL COUNT DECREASED [None]
